FAERS Safety Report 24264882 (Version 2)
Quarter: 2024Q3

REPORT INFORMATION
  Report Type: Spontaneous
  Country: US (occurrence: US)
  Receive Date: 20240829
  Receipt Date: 20240930
  Transmission Date: 20241016
  Serious: No
  Sender: ROCHE
  Company Number: US-ROCHE-10000064849

PATIENT

DRUGS (2)
  1. ALTEPLASE [Suspect]
     Active Substance: ALTEPLASE
     Indication: Product used for unknown indication
     Route: 065
  2. PULMOZYME [Suspect]
     Active Substance: DORNASE ALFA
     Indication: Product used for unknown indication
     Dosage: CHEST TUBE ADMINISTRATION
     Route: 065

REACTIONS (5)
  - Product quality issue [Unknown]
  - Product contamination physical [Unknown]
  - Poor quality device used [Unknown]
  - No adverse event [Unknown]
  - Off label use [Unknown]
